FAERS Safety Report 4665776-7 (Version None)
Quarter: 2005Q2

REPORT INFORMATION
  Report Type: 
  Country: None (occurrence: None)
  Receive Date: 20050517
  Receipt Date: 20050517
  Transmission Date: 20051028
  Serious: Yes (Hospitalization)
  Sender: FDA-Public Use
  Company Number: None

PATIENT
  Sex: Female
  Weight: 105.5 kg

DRUGS (2)
  1. IMATINIB MESYLATE 100MG CAPSULES, NOVARTIS [Suspect]
     Indication: GLIOBLASTOMA MULTIFORME
     Dosage: 600MG, PO QD
     Route: 048
     Dates: start: 20041020, end: 20050420
  2. TEMOZOLOMIDE, SCHERING-PLOUGH [Suspect]
     Indication: GLIOBLASTOMA MULTIFORME
     Dosage: 435MG, PO QD
     Route: 048
     Dates: start: 20041023, end: 20050420

REACTIONS (6)
  - IMPAIRED DRIVING ABILITY [None]
  - NEOPLASM PROGRESSION [None]
  - NEUROPATHY [None]
  - ROAD TRAFFIC ACCIDENT [None]
  - VISUAL DISTURBANCE [None]
  - VISUAL FIELD DEFECT [None]
